FAERS Safety Report 10668242 (Version 2)
Quarter: 2014Q4

REPORT INFORMATION
  Report Type: Spontaneous
  Country: US (occurrence: US)
  Receive Date: 20141222
  Receipt Date: 20141222
  Transmission Date: 20150529
  Serious: No
  Sender: FDA-Public Use
  Company Number: US-GLAXOSMITHKLINE-A1055030A

PATIENT

DRUGS (4)
  1. BENICAR [Concomitant]
     Active Substance: OLMESARTAN MEDOXOMIL
  2. AVODART [Suspect]
     Active Substance: DUTASTERIDE
     Indication: PROSTATOMEGALY
     Route: 048
     Dates: start: 2006
  3. CARDURA [Concomitant]
     Active Substance: DOXAZOSIN MESYLATE
  4. AVODART [Suspect]
     Active Substance: DUTASTERIDE
     Dates: start: 2006

REACTIONS (8)
  - Product quality issue [Unknown]
  - Poor quality sleep [Not Recovered/Not Resolved]
  - Feeling hot [Not Recovered/Not Resolved]
  - Breast pain [Not Recovered/Not Resolved]
  - Drug ineffective [Unknown]
  - Gynaecomastia [Not Recovered/Not Resolved]
  - Nocturia [Not Recovered/Not Resolved]
  - Pain [Unknown]

NARRATIVE: CASE EVENT DATE: 201304
